FAERS Safety Report 4732137-1 (Version None)
Quarter: 2005Q3

REPORT INFORMATION
  Report Type: 
  Country: None (occurrence: None)
  Receive Date: 20050721
  Receipt Date: 20050516
  Transmission Date: 20060218
  Serious: No
  Sender: FDA-Public Use
  Company Number: 2005SP001204

PATIENT
  Age: 50 Year
  Sex: Female
  Weight: 59.8748 kg

DRUGS (7)
  1. LUNESTA [Suspect]
     Dosage: 3 MG;HS;ORAL
     Route: 048
     Dates: start: 20050510, end: 20050513
  2. THYROID THERAPY [Concomitant]
  3. ESTROGEN NOS [Concomitant]
  4. ZELNORM [Concomitant]
  5. NEXIUM [Concomitant]
  6. DURAGESIC-100 [Concomitant]
  7. MIRALAX [Concomitant]

REACTIONS (1)
  - HYPERSENSITIVITY [None]
